FAERS Safety Report 6437388-6 (Version None)
Quarter: 2009Q4

REPORT INFORMATION
  Report Type: 
  Country: None (occurrence: None)
  Receive Date: 20091112
  Receipt Date: 20091012
  Transmission Date: 20100525
  Serious: No
  Sender: FDA-Public Use
  Company Number: US-BAYER-200936414NA

PATIENT
  Sex: Female

DRUGS (1)
  1. MIRENA [Suspect]
     Indication: DRUG USE FOR UNKNOWN INDICATION
     Dosage: CONTINUOUS DELIVERY
     Route: 015
     Dates: start: 20080801

REACTIONS (6)
  - AMENORRHOEA [None]
  - ASTHENIA [None]
  - BREAST TENDERNESS [None]
  - FATIGUE [None]
  - METRORRHAGIA [None]
  - MOOD ALTERED [None]
